FAERS Safety Report 19039716 (Version 1)
Quarter: 2021Q1

REPORT INFORMATION
  Report Type: Spontaneous
  Country: US (occurrence: US)
  Receive Date: 20210322
  Receipt Date: 20210322
  Transmission Date: 20210420
  Serious: No
  Sender: FDA-Public Use
  Company Number: US-GILEAD-2021-0519083

PATIENT
  Sex: Female

DRUGS (2)
  1. HARVONI [Suspect]
     Active Substance: LEDIPASVIR\SOFOSBUVIR
     Indication: PRODUCT USED FOR UNKNOWN INDICATION
     Dosage: UNK
     Route: 065
     Dates: start: 20201226, end: 20201231
  2. HARVONI [Suspect]
     Active Substance: LEDIPASVIR\SOFOSBUVIR
     Dosage: UNK
     Route: 065
     Dates: start: 20210210, end: 20210220

REACTIONS (7)
  - Blood pressure increased [Recovered/Resolved]
  - Headache [Recovering/Resolving]
  - Disorientation [Recovering/Resolving]
  - Rhinorrhoea [Not Recovered/Not Resolved]
  - Confusional state [Recovering/Resolving]
  - COVID-19 [Unknown]
  - Drug hypersensitivity [Recovering/Resolving]

NARRATIVE: CASE EVENT DATE: 20201226
